FAERS Safety Report 10077470 (Version 1)
Quarter: 2014Q2

REPORT INFORMATION
  Report Type: Spontaneous
  Country: US (occurrence: US)
  Receive Date: 20140414
  Receipt Date: 20140414
  Transmission Date: 20141212
  Serious: No
  Sender: FDA-Public Use
  Company Number: US-BANPHARM-20131575

PATIENT
  Age: 56 Year
  Sex: Male
  Weight: 98.88 kg

DRUGS (2)
  1. ALEVE LIQUID GELS 220 MG [Suspect]
     Indication: PAIN
     Dosage: 2 DF, ONCE DAILY,
     Route: 048
     Dates: start: 201307
  2. ALEVE ANY TYPE [Suspect]
     Indication: PAIN
     Dosage: 2 DF, ONCE DAILY,
     Route: 048
     Dates: start: 2011

REACTIONS (2)
  - Insomnia [Unknown]
  - Incorrect drug administration duration [Unknown]
